FAERS Safety Report 21456367 (Version 1)
Quarter: 2022Q4

REPORT INFORMATION
  Report Type: Spontaneous
  Country: CH (occurrence: CH)
  Receive Date: 20221014
  Receipt Date: 20221014
  Transmission Date: 20230113
  Serious: Yes (Other)
  Sender: FDA-Public Use
  Company Number: CH-Techdow-2022Techdow000073

PATIENT
  Age: 67 Year
  Sex: Male

DRUGS (1)
  1. HEPARIN SODIUM [Suspect]
     Active Substance: HEPARIN SODIUM
     Indication: Anticoagulant therapy

REACTIONS (4)
  - Heparin-induced thrombocytopenia [Recovered/Resolved]
  - Pneumonia [Unknown]
  - Infection [Unknown]
  - Haemorrhage [Recovered/Resolved]
